FAERS Safety Report 5322055-2 (Version None)
Quarter: 2007Q2

REPORT INFORMATION
  Report Type: 
  Country: None (occurrence: None)
  Receive Date: 20070511
  Receipt Date: 20070501
  Transmission Date: 20071010
  Serious: Yes (Death)
  Sender: FDA-Public Use
  Company Number: US-JNJFOC-20060902599

PATIENT
  Age: 2 Decade
  Sex: Male

DRUGS (6)
  1. DIPHENHYDRAMINE HCL [Suspect]
     Indication: SUICIDE ATTEMPT
     Route: 048
  2. HYDROCODONE [Suspect]
     Indication: SUICIDE ATTEMPT
     Route: 048
  3. MUSCLE RELAXANT [Suspect]
     Indication: SUICIDE ATTEMPT
     Route: 048
  4. BENZODIAZEPINE [Suspect]
     Indication: SUICIDE ATTEMPT
     Route: 048
  5. CHLORDIAZEPOXIDE [Suspect]
     Indication: SUICIDE ATTEMPT
     Route: 048
  6. ISOPROPYL ALCOHOL COMPOUND LIQUID [Suspect]
     Indication: SUICIDE ATTEMPT
     Route: 048

REACTIONS (2)
  - COMPLETED SUICIDE [None]
  - MULTIPLE DRUG OVERDOSE INTENTIONAL [None]
